FAERS Safety Report 10254683 (Version 1)
Quarter: 2014Q2

REPORT INFORMATION
  Report Type: Spontaneous
  Country: US (occurrence: US)
  Receive Date: 20140624
  Receipt Date: 20140624
  Transmission Date: 20141212
  Serious: No
  Sender: FDA-Public Use
  Company Number: US-AMGEN-USASP2014047162

PATIENT
  Age: 37 Year
  Sex: Male

DRUGS (5)
  1. ENBREL [Suspect]
     Indication: PSORIATIC ARTHROPATHY
     Dosage: 50 MG, ONCE IN 7 DAYS
     Route: 058
     Dates: start: 201305, end: 201401
  2. ZETIA [Concomitant]
     Dosage: UNK
  3. FLEXERIL                           /00821801/ [Concomitant]
     Dosage: UNK
  4. METFORMIN [Concomitant]
     Dosage: UNK
  5. BROMIN                             /00098602/ [Concomitant]
     Dosage: UNK

REACTIONS (2)
  - Skin disorder [Unknown]
  - Arthritis [Unknown]
